FAERS Safety Report 9142793 (Version 1)
Quarter: 2013Q1

REPORT INFORMATION
  Report Type: Spontaneous
  Country: CA (occurrence: CA)
  Receive Date: 20130306
  Receipt Date: 20130306
  Transmission Date: 20140127
  Serious: Yes (Death)
  Sender: FDA-Public Use
  Company Number: CA-TEVA-389945USA

PATIENT
  Age: 19 Year
  Sex: Female

DRUGS (1)
  1. APRI [Suspect]
     Dosage: 1 DOSAGE FORMS DAILY;
     Route: 065

REACTIONS (1)
  - Sudden death [Fatal]
